FAERS Safety Report 4946207-6 (Version None)
Quarter: 2006Q1

REPORT INFORMATION
  Report Type: 
  Country: None (occurrence: None)
  Receive Date: 20060201
  Receipt Date: 20051218
  Transmission Date: 20060701
  Serious: No
  Sender: FDA-Public Use
  Company Number: 2005PV005986

PATIENT
  Age: 65 Year
  Sex: Male
  Weight: 103.4201 kg

DRUGS (2)
  1. BYETTA [Suspect]
     Indication: DIABETES MELLITUS NON-INSULIN-DEPENDENT
     Dosage: 5 MCG;BID;SC
     Route: 058
     Dates: start: 20051216
  2. GLYBURIDE [Concomitant]

REACTIONS (2)
  - CONSTIPATION [None]
  - NAUSEA [None]
